FAERS Safety Report 9776123 (Version 1)
Quarter: 2013Q4

REPORT INFORMATION
  Report Type: Report from Study
  Country: JP (occurrence: JP)
  Receive Date: 20131220
  Receipt Date: 20131220
  Transmission Date: 20140711
  Serious: Yes (Other)
  Sender: FDA-Public Use
  Company Number: JP-EISAI INC-E2020-13355-SOL-JP

PATIENT
  Age: 82 Year
  Sex: Female

DRUGS (10)
  1. ARICEPT [Suspect]
     Indication: DEMENTIA ALZHEIMER^S TYPE
     Route: 048
     Dates: start: 20110317, end: 20110822
  2. ARICEPT [Suspect]
     Route: 048
     Dates: start: 20110823, end: 20110912
  3. ARICEPT [Suspect]
     Route: 048
     Dates: start: 20110913
  4. AMARYL [Concomitant]
     Route: 048
  5. BASEN [Concomitant]
     Route: 048
  6. PLAVIX [Concomitant]
     Route: 048
  7. MICARDIS [Concomitant]
     Route: 048
  8. POSTERISAN [Concomitant]
  9. MAGMITT [Concomitant]
     Dosage: UNKNOWN
     Route: 048
  10. NESINA [Concomitant]
     Dosage: UNKNOWN
     Route: 048

REACTIONS (1)
  - Delirium [Recovered/Resolved]
